FAERS Safety Report 14350203 (Version 1)
Quarter: 2018Q1

REPORT INFORMATION
  Report Type: Spontaneous
  Country: US (occurrence: US)
  Receive Date: 20180103
  Receipt Date: 20180103
  Transmission Date: 20180509
  Serious: Yes (Other)
  Sender: FDA-Public Use
  Company Number: None

PATIENT
  Age: 54 Year
  Sex: Female

DRUGS (1)
  1. HUMIRA [Suspect]
     Active Substance: ADALIMUMAB
     Indication: RHEUMATOID ARTHRITIS
     Dosage: ?          OTHER FREQUENCY:WEEKLY;?
     Route: 058
     Dates: start: 20170331, end: 20171027

REACTIONS (6)
  - Dizziness [None]
  - Throat tightness [None]
  - Paraesthesia [None]
  - Sensation of foreign body [None]
  - Headache [None]
  - Migraine [None]

NARRATIVE: CASE EVENT DATE: 20180102
